FAERS Safety Report 22661666 (Version 1)
Quarter: 2023Q2

REPORT INFORMATION
  Report Type: Spontaneous
  Country: FR (occurrence: FR)
  Receive Date: 20230630
  Receipt Date: 20230630
  Transmission Date: 20230722
  Serious: No
  Sender: FDA-Public Use
  Company Number: FR-JAZZ PHARMACEUTICALS-2023-FR-005486

PATIENT

DRUGS (3)
  1. CANNABIDIOL [Suspect]
     Active Substance: CANNABIDIOL
     Indication: Severe myoclonic epilepsy of infancy
     Dosage: 5 MILLIGRAM/KILOGRAM/DAY
     Dates: start: 20230123, end: 20230205
  2. CANNABIDIOL [Suspect]
     Active Substance: CANNABIDIOL
     Dosage: 10 MILLIGRAM/KILOGRAM/DAY
     Dates: start: 20230206
  3. BRIVIACT [Concomitant]
     Active Substance: BRIVARACETAM
     Dosage: UNK

REACTIONS (1)
  - Aggression [Unknown]
